FAERS Safety Report 16084113 (Version 1)
Quarter: 2019Q2

REPORT INFORMATION
  Report Type: Spontaneous
  Country: US (occurrence: US)
  Receive Date: 20190316
  Receipt Date: 20190316
  Transmission Date: 20190711
  Serious: Yes (Disabling)
  Sender: FDA-Public Use
  Company Number: None

PATIENT
  Age: 76 Year
  Sex: Female
  Weight: 78.75 kg

DRUGS (4)
  1. METFORMIN [Concomitant]
     Active Substance: METFORMIN HYDROCHLORIDE
  2. AMLODIPINE [Concomitant]
     Active Substance: AMLODIPINE BESYLATE
  3. EYE SUPPLEMENTS WITH LUTEIN [Concomitant]
  4. LOSARTAN POTASSIUM 100MG TAB [Suspect]
     Active Substance: LOSARTAN POTASSIUM
     Indication: HYPERTENSION
     Dosage: ?          QUANTITY:1 TABLET(S);?
     Route: 048
     Dates: start: 20190109, end: 20190209

REACTIONS (9)
  - Fatigue [None]
  - Malaise [None]
  - Muscle spasms [None]
  - Chest pain [None]
  - Cough [None]
  - Blood pressure increased [None]
  - Dysstasia [None]
  - Wrong technique in product usage process [None]
  - Lethargy [None]

NARRATIVE: CASE EVENT DATE: 20190109
